FAERS Safety Report 8916515 (Version 1)
Quarter: 2012Q4

REPORT INFORMATION
  Report Type: 
  Country: FR (occurrence: FR)
  Receive Date: 20121120
  Receipt Date: 20121120
  Transmission Date: 20130627
  Serious: Yes (Hospitalization)
  Sender: FDA-Public Use
  Company Number: FR-ROCHE-850101130001

PATIENT
  Age: 28 Year
  Sex: Male
  Weight: 66 kg

DRUGS (2)
  1. ROCEPHINE [Suspect]
     Indication: LUNG DISORDER
     Route: 065
  2. GLAFENINE [Concomitant]
     Route: 048

REACTIONS (2)
  - Hepatitis [Recovering/Resolving]
  - Coagulopathy [Recovering/Resolving]
